FAERS Safety Report 12802200 (Version 1)
Quarter: 2016Q3

REPORT INFORMATION
  Report Type: Spontaneous
  Country: US (occurrence: US)
  Receive Date: 20160930
  Receipt Date: 20160930
  Transmission Date: 20161109
  Serious: Yes (Other)
  Sender: FDA-Public Use
  Company Number: None

PATIENT
  Age: 82 Year
  Sex: Female
  Weight: 74.25 kg

DRUGS (3)
  1. NITROFURANTOIN UNKNOWN [Suspect]
     Active Substance: NITROFURANTOIN
     Indication: CYSTITIS
     Dosage: ?          QUANTITY:14 CAPSULE(S);?
     Route: 048
     Dates: start: 20160928, end: 20160929
  2. B12 SUPPLEMENT FLORI-JEN [Concomitant]
  3. CIPRO [Concomitant]
     Active Substance: CIPROFLOXACIN HYDROCHLORIDE

REACTIONS (6)
  - Fatigue [None]
  - Dysstasia [None]
  - Confusional state [None]
  - Disorientation [None]
  - Depression [None]
  - Asthenia [None]

NARRATIVE: CASE EVENT DATE: 20160929
